FAERS Safety Report 9707407 (Version 1)
Quarter: 2013Q4

REPORT INFORMATION
  Report Type: Spontaneous
  Country: US (occurrence: None)
  Receive Date: 20131122
  Receipt Date: 20131122
  Transmission Date: 20140711
  Serious: No
  Sender: FDA-Public Use
  Company Number: None

PATIENT
  Age: 60 Year
  Sex: Female

DRUGS (1)
  1. HUMIRA 40MG ABBVIE [Suspect]
     Dosage: 40MG  Q2W  SQ
     Route: 058
     Dates: start: 20130823, end: 201310

REACTIONS (4)
  - Headache [None]
  - Diabetes mellitus [None]
  - Hypertension [None]
  - Psoriasis [None]
